FAERS Safety Report 14841474 (Version 2)
Quarter: 2018Q2

REPORT INFORMATION
  Report Type: Spontaneous
  Country: US (occurrence: US)
  Receive Date: 20180503
  Receipt Date: 20180620
  Transmission Date: 20180711
  Serious: No
  Sender: FDA-Public Use
  Company Number: US-ASTRAZENECA-2018SE44401

PATIENT
  Age: 860 Month
  Sex: Female
  Weight: 104.3 kg

DRUGS (8)
  1. PREDNISONE. [Concomitant]
     Active Substance: PREDNISONE
     Indication: ASTHMA
     Dosage: 5 MG
     Route: 065
  2. PREDNISONE. [Concomitant]
     Active Substance: PREDNISONE
     Indication: ASTHMA
     Route: 065
  3. PREDNISONE. [Concomitant]
     Active Substance: PREDNISONE
     Indication: ASTHMA
     Dosage: 5.5 MG
     Route: 065
  4. FASENRA [Suspect]
     Active Substance: BENRALIZUMAB
     Indication: ASTHMA
     Route: 058
     Dates: start: 20180424
  5. FASENRA [Suspect]
     Active Substance: BENRALIZUMAB
     Indication: ASTHMA
     Route: 058
     Dates: start: 201801
  6. FASENRA [Suspect]
     Active Substance: BENRALIZUMAB
     Indication: ASTHMA
     Route: 058
     Dates: start: 20180226
  7. VITAMIN C [Concomitant]
     Active Substance: ASCORBIC ACID
     Indication: IMMUNE SYSTEM DISORDER
     Route: 065
  8. FASENRA [Suspect]
     Active Substance: BENRALIZUMAB
     Indication: ASTHMA
     Route: 058
     Dates: start: 20180328

REACTIONS (12)
  - Asthma [Not Recovered/Not Resolved]
  - Fatigue [Not Recovered/Not Resolved]
  - Malaise [Unknown]
  - Seasonal allergy [Not Recovered/Not Resolved]
  - Weight decreased [Unknown]
  - Asthenia [Unknown]
  - Hypersensitivity [Not Recovered/Not Resolved]
  - Diarrhoea [Unknown]
  - Nausea [Unknown]
  - Decreased appetite [Unknown]
  - Dyspnoea [Not Recovered/Not Resolved]
  - Hypophagia [Unknown]

NARRATIVE: CASE EVENT DATE: 201802
